FAERS Safety Report 7659325-9 (Version None)
Quarter: 2011Q3

REPORT INFORMATION
  Report Type: 
  Country: None (occurrence: None)
  Receive Date: 20110802
  Receipt Date: 20110718
  Transmission Date: 20111222
  Serious: Yes (Hospitalization)
  Sender: FDA-Public Use
  Company Number: 2011MA008984

PATIENT
  Age: 57 Year
  Sex: Male
  Weight: 73 kg

DRUGS (9)
  1. TAMSULOSIN HCL [Concomitant]
  2. WARFARIN [Concomitant]
  3. PHENOBARBITAL TAB [Concomitant]
  4. SIMVASTATIN [Concomitant]
  5. CARBAMAZEPINE [Suspect]
     Indication: CONVULSION
     Dosage: 400 MG;BID
  6. EZETIMIBE [Concomitant]
  7. OMEPRAZOLE [Concomitant]
  8. FINASTERIDE [Concomitant]
  9. FOLIC ACID [Concomitant]

REACTIONS (3)
  - DRUG LEVEL BELOW THERAPEUTIC [None]
  - DRUG INTERACTION [None]
  - KIDNEY TRANSPLANT REJECTION [None]
